FAERS Safety Report 25776014 (Version 1)
Quarter: 2025Q3

REPORT INFORMATION
  Report Type: Spontaneous
  Country: US (occurrence: US)
  Receive Date: 20250909
  Receipt Date: 20250909
  Transmission Date: 20251020
  Serious: Yes (Hospitalization)
  Sender: SANDOZ
  Company Number: US-SANDOZ-SDZ2025US063957

PATIENT
  Age: 59 Year
  Sex: Female
  Weight: 51.5 kg

DRUGS (5)
  1. BEVACIZUMAB [Suspect]
     Active Substance: BEVACIZUMAB
     Indication: Colorectal cancer metastatic
     Route: 042
     Dates: start: 20241218, end: 20250819
  2. FLUOROURACIL [Suspect]
     Active Substance: FLUOROURACIL
     Dosage: 2755 MG, Q2W
     Route: 042
     Dates: start: 20241218, end: 20250819
  3. FLUOROURACIL [Suspect]
     Active Substance: FLUOROURACIL
     Indication: Colorectal cancer metastatic
     Dosage: 464 MG, Q2W
     Route: 040
     Dates: start: 20241218, end: 20250819
  4. LEUCOVORIN [Suspect]
     Active Substance: LEUCOVORIN\LEUCOVORIN CALCIUM
     Indication: Colorectal cancer metastatic
     Dosage: 464 MG, Q2W
     Route: 042
     Dates: start: 20241218, end: 20250819
  5. OXALIPLATIN [Suspect]
     Active Substance: OXALIPLATIN
     Indication: Colorectal cancer metastatic
     Dosage: 94.25 MG, Q2W
     Route: 042
     Dates: start: 20241218, end: 20250819

REACTIONS (1)
  - Abdominal pain upper [Recovered/Resolved]

NARRATIVE: CASE EVENT DATE: 20250824
